FAERS Safety Report 12434600 (Version 1)
Quarter: 2016Q2

REPORT INFORMATION
  Report Type: Spontaneous
  Country: US (occurrence: US)
  Receive Date: 20160603
  Receipt Date: 20160603
  Transmission Date: 20160815
  Serious: Yes (Hospitalization)
  Sender: FDA-Public Use
  Company Number: US-DSJP-DSU-2015-125990

PATIENT
  Age: 39 Year
  Sex: Female
  Weight: 61.22 kg

DRUGS (3)
  1. CLONIDINE. [Concomitant]
     Active Substance: CLONIDINE
     Indication: PRODUCT USED FOR UNKNOWN INDICATION
     Dosage: 10 MG, QD
     Dates: end: 2013
  2. LISINOPRIL. [Concomitant]
     Active Substance: LISINOPRIL
     Indication: PRODUCT USED FOR UNKNOWN INDICATION
     Dosage: 10 MG, QD
  3. BENICAR [Suspect]
     Active Substance: OLMESARTAN MEDOXOMIL
     Indication: HYPERTENSION
     Dosage: 40 MG, QD
     Dates: start: 2006, end: 2008

REACTIONS (12)
  - Haemorrhoids [Unknown]
  - Gastrooesophageal reflux disease [Unknown]
  - Dysphagia [Unknown]
  - Dyspepsia [Unknown]
  - Diarrhoea [Unknown]
  - Proctalgia [Unknown]
  - Irritable bowel syndrome [Unknown]
  - Abdominal distension [Unknown]
  - Constipation [Unknown]
  - Nausea [Unknown]
  - Vomiting [Unknown]
  - Abdominal pain [Unknown]

NARRATIVE: CASE EVENT DATE: 201009
